FAERS Safety Report 5890309-7 (Version None)
Quarter: 2008Q3

REPORT INFORMATION
  Report Type: 
  Country: None (occurrence: None)
  Receive Date: 20080918
  Receipt Date: 20080905
  Transmission Date: 20090109
  Serious: Yes (Hospitalization)
  Sender: FDA-Public Use
  Company Number: 2008002292

PATIENT
  Sex: Male
  Weight: 76.5672 kg

DRUGS (14)
  1. ERLOTINIB (ERLOTINIB) (TABLET) (ERLOTINIB) [Suspect]
     Indication: NON-SMALL CELL LUNG CANCER
     Dosage: 150 MG, QD, ORAL
     Route: 048
     Dates: start: 20080730, end: 20080827
  2. SORAFENIB/PLACEBO [Suspect]
     Dosage: 400 MG, BID, ORAL
     Route: 048
     Dates: start: 20080730, end: 20080827
  3. ALLOPURINOL [Concomitant]
  4. DECADRON [Concomitant]
  5. EFFEXOR [Concomitant]
  6. LASIX [Concomitant]
  7. POTASSIUM CHLORIDE [Concomitant]
  8. TOPROL-XL [Concomitant]
  9. TUSSINEX [Concomitant]
  10. B12 (CYNAOCOBALAMIN) [Concomitant]
  11. ZOCOR [Concomitant]
  12. ZOFRAN [Concomitant]
  13. AMBIEN (ZOLPIDEN TARTRATE) [Concomitant]
  14. HYDROCODONE/AETAMINOPHEN (VICODIN) [Concomitant]

REACTIONS (2)
  - ARRHYTHMIA SUPRAVENTRICULAR [None]
  - ATRIAL FIBRILLATION [None]
